FAERS Safety Report 20244631 (Version 1)
Quarter: 2021Q4

REPORT INFORMATION
  Report Type: Report from Study
  Country: US (occurrence: US)
  Receive Date: 20211229
  Receipt Date: 20211229
  Transmission Date: 20220303
  Serious: No
  Sender: FDA-Public Use
  Company Number: US-Ipsen Biopharmaceuticals, Inc.-2021-32616

PATIENT
  Age: 70 Year

DRUGS (1)
  1. DYSPORT [Suspect]
     Active Substance: ABOBOTULINUMTOXINA
     Indication: Muscle spasticity
     Dosage: 4500 IU (LOWER LIMB DISTAL MUSCLES - 1500, LOWER LIMB PROXIMAL MUSCLES - 3000)
     Route: 065

REACTIONS (2)
  - Muscle spasticity [Unknown]
  - Prescribed overdose [Unknown]
